FAERS Safety Report 25675316 (Version 1)
Quarter: 2025Q3

REPORT INFORMATION
  Report Type: Spontaneous
  Country: CA (occurrence: CA)
  Receive Date: 20250813
  Receipt Date: 20250813
  Transmission Date: 20251020
  Serious: Yes (Disabling, Other)
  Sender: TEVA
  Company Number: CA-TEVA-VS-3362706

PATIENT
  Age: 28 Year
  Sex: Male

DRUGS (1)
  1. DICLOFENAC [Suspect]
     Active Substance: DICLOFENAC
     Indication: Product used for unknown indication
     Route: 065

REACTIONS (11)
  - Neck pain [Unknown]
  - Abdominal discomfort [Unknown]
  - Therapeutic response decreased [Unknown]
  - Discomfort [Unknown]
  - Musculoskeletal stiffness [Unknown]
  - Joint swelling [Unknown]
  - Back pain [Unknown]
  - Arthralgia [Unknown]
  - Sacroiliitis [Unknown]
  - Fatigue [Unknown]
  - Ankylosing spondylitis [Unknown]
